FAERS Safety Report 18256102 (Version 1)
Quarter: 2020Q3

REPORT INFORMATION
  Report Type: Spontaneous
  Country: GB (occurrence: GB)
  Receive Date: 20200911
  Receipt Date: 20200911
  Transmission Date: 20201103
  Serious: Yes (Life-Threatening, Hospitalization)
  Sender: FDA-Public Use
  Company Number: GB-TEVA-2020-GB-1825149

PATIENT
  Age: 61 Year
  Sex: Male
  Weight: 82 kg

DRUGS (12)
  1. NAPROXEN SODIUM. [Suspect]
     Active Substance: NAPROXEN SODIUM
     Indication: RHEUMATOID ARTHRITIS
     Dosage: 1000 MG
     Route: 048
     Dates: start: 19911130, end: 20200803
  2. RAMIPRIL. [Concomitant]
     Active Substance: RAMIPRIL
  3. BISOPROLOL FUMARATE. [Concomitant]
     Active Substance: BISOPROLOL FUMARATE
  4. SIMBRINZA [Concomitant]
     Active Substance: BRIMONIDINE TARTRATE\BRINZOLAMIDE
  5. ISOSORBIDE MONONITRATE. [Concomitant]
     Active Substance: ISOSORBIDE MONONITRATE
  6. ATORVASTATIN CALCIUM. [Concomitant]
     Active Substance: ATORVASTATIN CALCIUM
  7. ACETYLSALICYLIC ACID [Suspect]
     Active Substance: ASPIRIN
     Indication: ACUTE CORONARY SYNDROME
     Dosage: 75 MG
     Route: 048
     Dates: start: 20101025
  8. TICAGRELOR. [Suspect]
     Active Substance: TICAGRELOR
     Indication: ACUTE MYOCARDIAL INFARCTION
     Dosage: 180 MG
     Route: 048
     Dates: start: 20191030
  9. TAGAMET [Concomitant]
     Active Substance: CIMETIDINE
  10. RANOLAZINE. [Concomitant]
     Active Substance: RANOLAZINE
  11. MYCOPHENOLATE MOFETIL. [Concomitant]
     Active Substance: MYCOPHENOLATE MOFETIL
  12. DUOTRAV [Concomitant]
     Active Substance: TIMOLOL MALEATE\TRAVOPROST

REACTIONS (5)
  - Dizziness [Unknown]
  - Duodenal ulcer haemorrhage [Recovering/Resolving]
  - Abdominal pain upper [Unknown]
  - Right ventricular dysfunction [Unknown]
  - Vomiting [Unknown]

NARRATIVE: CASE EVENT DATE: 20200803
